FAERS Safety Report 6938795-5 (Version None)
Quarter: 2010Q3

REPORT INFORMATION
  Report Type: 
  Country: None (occurrence: None)
  Receive Date: 20100824
  Receipt Date: 20100813
  Transmission Date: 20110219
  Serious: Yes (Disabling)
  Sender: FDA-Public Use
  Company Number: AU-BAXTER-2010BH021635

PATIENT
  Age: 43 Year
  Sex: Male

DRUGS (2)
  1. EXTRANEAL [Suspect]
     Indication: PERITONEAL DIALYSIS
     Route: 033
  2. LITHIUM CARBONATE [Concomitant]
     Indication: BIPOLAR DISORDER
     Route: 065

REACTIONS (4)
  - CHEMICAL PERITONITIS [None]
  - FEELING OF BODY TEMPERATURE CHANGE [None]
  - MALAISE [None]
  - PRURITUS [None]
